FAERS Safety Report 4732198-X (Version None)
Quarter: 2005Q3

REPORT INFORMATION
  Report Type: 
  Country: None (occurrence: None)
  Receive Date: 20050725
  Receipt Date: 20040713
  Transmission Date: 20060218
  Serious: Yes (Other)
  Sender: FDA-Public Use
  Company Number: USA-2004-0015976

PATIENT
  Age: 63 Year
  Sex: Male

DRUGS (2)
  1. MORPHINE SULFATE [Suspect]
     Indication: PAIN
  2. MARIJUANA (CANNABIS) [Suspect]
     Indication: PAIN

REACTIONS (2)
  - DRUG ABUSER [None]
  - DRUG INEFFECTIVE [None]
